FAERS Safety Report 4841453-4 (Version None)
Quarter: 2005Q4

REPORT INFORMATION
  Report Type: 
  Country: None (occurrence: None)
  Receive Date: 20051130
  Receipt Date: 20051111
  Transmission Date: 20060501
  Serious: Yes (Hospitalization)
  Sender: FDA-Public Use
  Company Number: NO-BOEHRINGER INGELHEIM PHARMACEUTICALS, INC.-2005-BP-20309YA

PATIENT
  Sex: Male

DRUGS (2)
  1. TAMSULOSIN [Suspect]
     Indication: BENIGN PROSTATIC HYPERPLASIA
     Route: 048
     Dates: start: 20040702, end: 20050709
  2. DUTASTERIDE [Suspect]
     Indication: BENIGN PROSTATIC HYPERPLASIA
     Route: 048
     Dates: start: 20040702, end: 20050709

REACTIONS (2)
  - BLADDER CANCER [None]
  - BLOOD CREATININE INCREASED [None]
